FAERS Safety Report 23941460 (Version 2)
Quarter: 2024Q2

REPORT INFORMATION
  Report Type: Spontaneous
  Country: US (occurrence: US)
  Receive Date: 20240605
  Receipt Date: 20240611
  Transmission Date: 20240716
  Serious: No
  Sender: FDA-Public Use
  Company Number: US-PFIZER INC-PV202400066478

PATIENT
  Age: 57 Year
  Sex: Female
  Weight: 63.5 kg

DRUGS (1)
  1. IBRANCE [Suspect]
     Active Substance: PALBOCICLIB
     Indication: Breast cancer metastatic
     Dosage: 125 MG, CYCLIC (TAKES ONE A DAY BY MOUTH FOR 21 DAYS CYCLE AND THEN 7 OFF)
     Route: 048

REACTIONS (7)
  - Alopecia [Unknown]
  - Nausea [Unknown]
  - Oral pain [Unknown]
  - Decreased appetite [Unknown]
  - Diarrhoea [Unknown]
  - Hot flush [Unknown]
  - Abdominal distension [Unknown]
